FAERS Safety Report 10611722 (Version 2)
Quarter: 2014Q4

REPORT INFORMATION
  Report Type: Report from Study
  Country: JP (occurrence: JP)
  Receive Date: 20141126
  Receipt Date: 20141126
  Transmission Date: 20150529
  Serious: Yes (Hospitalization, Other)
  Sender: FDA-Public Use
  Company Number: PHHY2013JP008701

PATIENT
  Age: 80 Year
  Sex: Female

DRUGS (15)
  1. PRIMOBOLAN-DEPOT [Suspect]
     Active Substance: METHENOLONE ENANTHATE
     Indication: PRODUCT USED FOR UNKNOWN INDICATION
     Dosage: 30 MG, QD
     Route: 048
     Dates: start: 20080326
  2. RED CELLS MAP [Concomitant]
     Active Substance: UNSPECIFIED INGREDIENT
     Indication: PRODUCT USED FOR UNKNOWN INDICATION
     Dosage: 2 U, EVERY 2 WEEKS
     Route: 065
     Dates: start: 20090621, end: 20090722
  3. ICL670A [Suspect]
     Active Substance: DEFERASIROX
     Dosage: 20 MG/KG, QD
     Route: 065
  4. PLATELETS [Concomitant]
     Active Substance: HUMAN PLATELET, ALLOGENIC
     Indication: PRODUCT USED FOR UNKNOWN INDICATION
     Dosage: 10 U, EVERY 1 TO 2 WEEKS
     Route: 065
     Dates: start: 20100310, end: 20100811
  5. ICL670A [Suspect]
     Active Substance: DEFERASIROX
     Dosage: 500 MG, QD
     Route: 048
     Dates: start: 20110106, end: 20110119
  6. ICL670A [Suspect]
     Active Substance: DEFERASIROX
     Dosage: 1000 MG, QD
     Route: 048
     Dates: start: 20110120
  7. LASIX [Concomitant]
     Active Substance: FUROSEMIDE
     Indication: PRODUCT USED FOR UNKNOWN INDICATION
     Dosage: 20 MG
     Route: 065
     Dates: start: 20080507
  8. TRANSAMIN [Concomitant]
     Active Substance: TRANEXAMIC ACID
     Indication: IRON OVERLOAD
     Dosage: 750 MG, UNK
     Route: 065
     Dates: start: 20090924
  9. RED CELLS MAP [Concomitant]
     Active Substance: UNSPECIFIED INGREDIENT
     Dosage: 2 U, EVERY 1.5 WEEKS
     Route: 065
     Dates: start: 20090805, end: 20100120
  10. RED CELLS MAP [Concomitant]
     Active Substance: UNSPECIFIED INGREDIENT
     Dosage: 2 U, EVERY 1 TO 2 WEEKS
     Route: 065
     Dates: start: 20100120, end: 20120201
  11. FLOMOX [Concomitant]
     Active Substance: CEFCAPENE PIVOXIL HYDROCHLORIDE HYDRATE
     Indication: INFECTION
     Route: 065
  12. ICL670A [Suspect]
     Active Substance: DEFERASIROX
     Indication: APLASTIC ANAEMIA
     Dosage: 1000 MG, QD
     Route: 048
     Dates: start: 20090122, end: 20090826
  13. ICL670A [Suspect]
     Active Substance: DEFERASIROX
     Dosage: 500 MG, QD
     Route: 048
     Dates: start: 20090827, end: 20100728
  14. ICL670A [Suspect]
     Active Substance: DEFERASIROX
     Dosage: 10 MG/KG, QD
     Route: 065
  15. NEORAL [Suspect]
     Active Substance: CYCLOSPORINE
     Indication: PRODUCT USED FOR UNKNOWN INDICATION
     Dosage: 100 MG, QD
     Route: 048
     Dates: start: 20080709, end: 20090610

REACTIONS (9)
  - Cellulitis [Recovering/Resolving]
  - Serum ferritin increased [Not Recovered/Not Resolved]
  - Gamma-glutamyltransferase increased [Recovering/Resolving]
  - Appendicitis [Recovering/Resolving]
  - White blood cell count decreased [Recovering/Resolving]
  - Renal impairment [Unknown]
  - Infection [Recovering/Resolving]
  - Constipation [Recovering/Resolving]
  - Blood creatinine increased [Not Recovered/Not Resolved]

NARRATIVE: CASE EVENT DATE: 20090304
